FAERS Safety Report 9040421 (Version 1)
Quarter: 2013Q1

REPORT INFORMATION
  Report Type: Report from Study
  Country: US (occurrence: US)
  Receive Date: 20130129
  Receipt Date: 20130129
  Transmission Date: 20140127
  Serious: No
  Sender: FDA-Public Use
  Company Number: US-ABBOTT-12P-163-0892061-00

PATIENT
  Age: 30 Year
  Sex: Male

DRUGS (4)
  1. HUMIRA 40 MG/0.8 ML PEN [Suspect]
     Indication: CROHN^S DISEASE
     Dates: start: 20111109, end: 20111220
  2. PENTASA [Concomitant]
     Indication: CROHN^S DISEASE
  3. CLARITIN D [Concomitant]
     Indication: HYPERSENSITIVITY
     Dosage: DAILY
  4. FLONASE [Concomitant]
     Indication: HYPERSENSITIVITY
     Dosage: DAILY
     Route: 045

REACTIONS (1)
  - Pharyngitis streptococcal [Recovered/Resolved]
